FAERS Safety Report 5603575-X (Version None)
Quarter: 2008Q1

REPORT INFORMATION
  Report Type: 
  Country: None (occurrence: None)
  Receive Date: 20080111
  Receipt Date: 20070928
  Transmission Date: 20080703
  Serious: Yes (Other)
  Sender: FDA-Public Use
  Company Number: HQWYE890808MAR05

PATIENT
  Age: 55 Year
  Sex: Female

DRUGS (3)
  1. PREMPRO [Suspect]
     Dosage: ORAL
     Route: 048
     Dates: start: 19970707, end: 19981101
  2. PREMARIN [Suspect]
     Dosage: ORAL
     Route: 048
     Dates: start: 19920329, end: 19970701
  3. PROVERA [Suspect]
     Dosage: ORAL
     Route: 048
     Dates: start: 19920329, end: 19970701

REACTIONS (1)
  - BREAST CANCER [None]
